FAERS Safety Report 5220556-9 (Version None)
Quarter: 2007Q1

REPORT INFORMATION
  Report Type: 
  Country: None (occurrence: None)
  Receive Date: 20070126
  Receipt Date: 20070117
  Transmission Date: 20070707
  Serious: Yes (Other)
  Sender: FDA-Public Use
  Company Number: GB-JNJFOC-20070104064

PATIENT
  Sex: Female

DRUGS (1)
  1. REMICADE [Suspect]
     Indication: CROHN'S DISEASE
     Dosage: ONE INFUSION ADMINISTERED.
     Route: 042

REACTIONS (2)
  - CUTANEOUS LUPUS ERYTHEMATOSUS [None]
  - PHOTOSENSITIVITY REACTION [None]
